FAERS Safety Report 7432737-4 (Version None)
Quarter: 2011Q2

REPORT INFORMATION
  Report Type: 
  Country: None (occurrence: None)
  Receive Date: 20110422
  Receipt Date: 20110415
  Transmission Date: 20111010
  Serious: Yes (Other)
  Sender: FDA-Public Use
  Company Number: A0919503A

PATIENT
  Sex: Male

DRUGS (1)
  1. AVODART [Suspect]
     Indication: PROSTATIC DISORDER
     Route: 065

REACTIONS (3)
  - THERAPEUTIC RESPONSE UNEXPECTED [None]
  - PROSTATE CANCER [None]
  - OFF LABEL USE [None]
